FAERS Safety Report 18131137 (Version 6)
Quarter: 2023Q1

REPORT INFORMATION
  Report Type: Spontaneous
  Country: US (occurrence: US)
  Receive Date: 20200810
  Receipt Date: 20230123
  Transmission Date: 20230418
  Serious: Yes (Other)
  Sender: FDA-Public Use
  Company Number: US-PFIZER INC-2020300755

PATIENT
  Age: 63 Year
  Sex: Female
  Weight: 93.89 kg

DRUGS (6)
  1. PRISTIQ EXTENDED-RELEASE [Suspect]
     Active Substance: DESVENLAFAXINE SUCCINATE
     Indication: Depression
     Dosage: 100 MG, 1X/DAY
     Route: 048
     Dates: start: 2009
  2. PRISTIQ EXTENDED-RELEASE [Suspect]
     Active Substance: DESVENLAFAXINE SUCCINATE
     Indication: Sleep apnoea syndrome
  3. ALLEGRA [Concomitant]
     Active Substance: FEXOFENADINE HYDROCHLORIDE
     Indication: Hypersensitivity
     Dosage: UNK
  4. BAYER ASPIRIN [Concomitant]
     Active Substance: ASPIRIN
     Indication: Blood pressure abnormal
     Dosage: UNK
  5. LISINOPRIL [Concomitant]
     Active Substance: LISINOPRIL
     Indication: Blood pressure abnormal
     Dosage: 10 MG, 1X/DAY
  6. ZOLPIDEM [Concomitant]
     Active Substance: ZOLPIDEM TARTRATE
     Indication: Insomnia
     Dosage: 10 MG
     Dates: start: 2010

REACTIONS (9)
  - Retinal detachment [Unknown]
  - Cataract [Unknown]
  - Insomnia [Unknown]
  - Arthritis [Unknown]
  - Fibromyalgia [Unknown]
  - Discomfort [Unknown]
  - Weight increased [Unknown]
  - Memory impairment [Unknown]
  - Panic reaction [Unknown]
